FAERS Safety Report 12079658 (Version 3)
Quarter: 2016Q2

REPORT INFORMATION
  Report Type: Spontaneous
  Country: US (occurrence: US)
  Receive Date: 20160216
  Receipt Date: 20160518
  Transmission Date: 20160815
  Serious: Yes (Death, Other)
  Sender: FDA-Public Use
  Company Number: US-PFIZER INC-2016076120

PATIENT
  Age: 68 Year
  Sex: Female
  Weight: 66 kg

DRUGS (2)
  1. IBRANCE [Suspect]
     Active Substance: PALBOCICLIB
     Dosage: 125 MG, CYCLIC (21DAYS ON/ 7DAYS OFF)
     Route: 048
     Dates: end: 20160506
  2. IBRANCE [Suspect]
     Active Substance: PALBOCICLIB
     Indication: BREAST CANCER METASTATIC
     Dosage: 125 MG, CYCLIC (21DAYS ON/ 7DAYS OFF)
     Route: 048
     Dates: start: 20160122

REACTIONS (2)
  - Death [Fatal]
  - Influenza [Unknown]

NARRATIVE: CASE EVENT DATE: 2016
